FAERS Safety Report 18633933 (Version 1)
Quarter: 2020Q4

REPORT INFORMATION
  Report Type: Spontaneous
  Country: US (occurrence: US)
  Receive Date: 20201218
  Receipt Date: 20201218
  Transmission Date: 20210114
  Serious: Yes (Other)
  Sender: FDA-Public Use
  Company Number: None

PATIENT
  Age: 63 Year
  Sex: Male
  Weight: 81.6 kg

DRUGS (1)
  1. BAMLANIVIMAB. [Suspect]
     Active Substance: BAMLANIVIMAB
     Indication: COVID-19
     Dosage: ?          OTHER FREQUENCY:120 ML/HOUR;?
     Route: 041
     Dates: start: 20201216, end: 20201216

REACTIONS (3)
  - Intentional product use issue [None]
  - Headache [None]
  - Body temperature increased [None]

NARRATIVE: CASE EVENT DATE: 20201216
